FAERS Safety Report 4898471-X (Version None)
Quarter: 2006Q1

REPORT INFORMATION
  Report Type: 
  Country: None (occurrence: None)
  Receive Date: 20060131
  Receipt Date: 20060131
  Transmission Date: 20060701
  Serious: Yes (Hospitalization, Other)
  Sender: FDA-Public Use
  Company Number: None

PATIENT
  Sex: Female
  Weight: 56.5 kg

DRUGS (7)
  1. CYCLOPHOSPHAMIDE [Suspect]
     Indication: ACUTE LYMPHOCYTIC LEUKAEMIA
     Dosage: SEE IMAGE
     Dates: start: 20060112, end: 20060117
  2. CYTARABINE [Suspect]
     Dosage: SEE IMAGE
     Dates: start: 20060112, end: 20060112
  3. DEXAMETHASONE [Suspect]
     Dosage: SEE IMAGE
     Dates: start: 20060112, end: 20060116
  4. DOXORUBICIN HCL [Suspect]
     Dosage: SEE IMAGE
     Dates: start: 20060115, end: 20060116
  5. DOXORUBICIN HCL [Suspect]
     Dosage: SEE IMAGE
     Dates: start: 20060112
  6. METHOTREXATE [Suspect]
     Dosage: SEE IMAGE
     Dates: start: 20060112, end: 20060113
  7. RITUXIMAB [Suspect]
     Dosage: SEE IMAGE

REACTIONS (4)
  - CHOLECYSTECTOMY [None]
  - MUCOSAL INFLAMMATION [None]
  - NAUSEA [None]
  - VOMITING [None]
